FAERS Safety Report 24830379 (Version 1)
Quarter: 2025Q1

REPORT INFORMATION
  Report Type: Spontaneous
  Country: US (occurrence: None)
  Receive Date: 20250109
  Receipt Date: 20250109
  Transmission Date: 20250409
  Serious: Yes (Disabling)
  Sender: FDA-CTU
  Company Number: None

PATIENT
  Age: 37 Year
  Sex: Female
  Weight: 98 kg

DRUGS (1)
  1. MOUNJARO [Suspect]
     Active Substance: TIRZEPATIDE

REACTIONS (3)
  - Anxiety [None]
  - Panic attack [None]
  - Suicidal ideation [None]

NARRATIVE: CASE EVENT DATE: 20241218
